FAERS Safety Report 5248032-8 (Version None)
Quarter: 2007Q1

REPORT INFORMATION
  Report Type: 
  Country: None (occurrence: None)
  Receive Date: 20070227
  Receipt Date: 20070215
  Transmission Date: 20070707
  Serious: Yes (Hospitalization)
  Sender: FDA-Public Use
  Company Number: FR-SANOFI-SYNTHELABO-A02200700510

PATIENT
  Age: 72 Year
  Sex: Female

DRUGS (17)
  1. ATHYMIL [Concomitant]
     Route: 048
  2. PAROXETINE HCL [Concomitant]
     Dosage: 40 MG
     Route: 048
  3. CRESTOR [Concomitant]
     Route: 048
  4. INDAPAMIDE [Concomitant]
     Route: 048
  5. METOPROLOL TARTRATE [Concomitant]
     Route: 048
  6. XANAX [Concomitant]
     Route: 048
  7. DALACINE [Suspect]
     Indication: DRUG USE FOR UNKNOWN INDICATION
     Route: 048
     Dates: start: 20070111, end: 20070119
  8. NOVONORM [Concomitant]
     Dosage: 3 UNIT
     Route: 048
  9. TRAMADOL HCL [Suspect]
     Indication: DRUG USE FOR UNKNOWN INDICATION
     Dosage: UNK
     Route: 048
     Dates: start: 20070114, end: 20070122
  10. GLUCOPHAGE [Concomitant]
     Dosage: 2000 MG
     Route: 048
  11. LOVENOX [Suspect]
     Indication: DRUG USE FOR UNKNOWN INDICATION
     Dosage: UNK
     Route: 058
     Dates: start: 20070112, end: 20070119
  12. ACARBOSE [Concomitant]
     Dosage: 1500 MG
     Route: 048
  13. CIPROFLOXACIN [Suspect]
     Indication: DRUG USE FOR UNKNOWN INDICATION
     Route: 048
     Dates: start: 20070111, end: 20070119
  14. KARDEGIC [Concomitant]
     Route: 048
  15. PYOSTACINE [Suspect]
     Indication: DRUG USE FOR UNKNOWN INDICATION
     Dosage: UNK
     Route: 048
     Dates: start: 20070108, end: 20070111
  16. IRBESARTAN [Concomitant]
     Route: 048
  17. KAYEXALATE [Suspect]
     Indication: DRUG USE FOR UNKNOWN INDICATION
     Dosage: UNK
     Route: 048
     Dates: start: 20070111, end: 20070119

REACTIONS (1)
  - RASH MACULO-PAPULAR [None]
